FAERS Safety Report 6251030-9 (Version None)
Quarter: 2009Q2

REPORT INFORMATION
  Report Type: 
  Country: None (occurrence: None)
  Receive Date: 20090630
  Receipt Date: 20090619
  Transmission Date: 20091009
  Serious: Yes (Hospitalization)
  Sender: FDA-Public Use
  Company Number: GB-NOVOPROD-287612

PATIENT
  Sex: Female

DRUGS (2)
  1. ACTRAPID [Suspect]
     Indication: TYPE 1 DIABETES MELLITUS
  2. INSULATARD [Suspect]
     Indication: TYPE 1 DIABETES MELLITUS

REACTIONS (3)
  - BRAIN INJURY [None]
  - HYPOGLYCAEMIC COMA [None]
  - PREGNANCY [None]
